FAERS Safety Report 7200190-1 (Version None)
Quarter: 2010Q4

REPORT INFORMATION
  Report Type: 
  Country: None (occurrence: None)
  Receive Date: 20101228
  Receipt Date: 20101217
  Transmission Date: 20110411
  Serious: Yes (Other)
  Sender: FDA-Public Use
  Company Number: CO-PFIZER INC-2010085292

PATIENT
  Age: 66 Year
  Sex: Male

DRUGS (10)
  1. LYRICA [Suspect]
     Indication: COMPLEX REGIONAL PAIN SYNDROME
     Dosage: 75 MG, 2X/DAY
     Route: 048
     Dates: start: 20100401, end: 20100501
  2. SALBUTAMOL [Concomitant]
  3. ENALAPRIL [Concomitant]
  4. BECLOMETASONE [Concomitant]
  5. THEOPHYLLINE [Concomitant]
  6. LORATADINE [Concomitant]
  7. PREDNISOLONE [Concomitant]
  8. NAPROXEN [Concomitant]
  9. TERBUTALINE [Concomitant]
  10. IPRATROPIUM BROMIDE [Concomitant]

REACTIONS (4)
  - ANAEMIA MEGALOBLASTIC [None]
  - ARTERIOSCLEROSIS [None]
  - BLOOD CHOLESTEROL INCREASED [None]
  - BLOOD FOLATE INCREASED [None]
